FAERS Safety Report 4512831-8 (Version None)
Quarter: 2004Q4

REPORT INFORMATION
  Report Type: 
  Country: None (occurrence: None)
  Receive Date: 20041130
  Receipt Date: 20041119
  Transmission Date: 20050328
  Serious: Yes (Other)
  Sender: FDA-Public Use
  Company Number: US-JNJFOC-20040807574

PATIENT
  Sex: Female
  Weight: 76.66 kg

DRUGS (9)
  1. REMICADE [Suspect]
     Indication: RHEUMATOID ARTHRITIS
     Dosage: MAINTENANCE
     Route: 042
  2. METHOTREXATE [Concomitant]
  3. METHOTREXATE [Concomitant]
  4. FOSAMAX [Concomitant]
  5. CALTRATE D [Concomitant]
  6. CALTRATE D [Concomitant]
  7. FOLIC ACID [Concomitant]
  8. DIOVAN [Concomitant]
  9. DITROPAN [Concomitant]

REACTIONS (1)
  - LUNG NEOPLASM MALIGNANT [None]
